FAERS Safety Report 6956788-9 (Version None)
Quarter: 2010Q3

REPORT INFORMATION
  Report Type: 
  Country: None (occurrence: None)
  Receive Date: 20100830
  Receipt Date: 20100813
  Transmission Date: 20110219
  Serious: Yes (Hospitalization, Other)
  Sender: FDA-Public Use
  Company Number: PHEH2008US04759

PATIENT
  Sex: Male
  Weight: 82.086 kg

DRUGS (33)
  1. ZOMETA [Suspect]
     Indication: HYPERCALCAEMIA
     Dosage: UNK
     Dates: start: 20050201
  2. ZOMETA [Suspect]
     Dosage: EVERY OTHER MONTH
  3. ATENOLOL [Concomitant]
     Dosage: 100 MG, QD
  4. HYDROCHLOROTHIAZIDE [Concomitant]
     Dosage: 50 MG, QD
  5. ASPIRIN [Concomitant]
  6. GLUCOSAMINE [Concomitant]
  7. RADIATION THERAPY [Concomitant]
  8. DEXAMETHASONE [Concomitant]
     Dosage: UNK
     Dates: start: 20050201
  9. THALIDOMIDE [Concomitant]
     Dates: start: 20050201
  10. MARIJUANA [Concomitant]
  11. OXYCODONE [Concomitant]
  12. DIAZEPAM [Concomitant]
  13. SKELAXIN [Concomitant]
     Dosage: 800 MG / PRN
  14. DECADRON [Concomitant]
     Dosage: UNK
  15. CHANTIX [Concomitant]
     Dosage: MONTH PACK
  16. NYSTATIN [Concomitant]
     Dosage: UNK
  17. SODIUM FLUORIDE [Concomitant]
     Dosage: UNK
  18. NICODERM [Concomitant]
     Dosage: UNK
  19. ANZEMET [Concomitant]
     Dosage: UNK
  20. LOPERAMIDE ^BELMAC^ [Concomitant]
     Dosage: UNK
  21. CIPRO [Concomitant]
     Dosage: UNK
  22. REVLIMID [Concomitant]
     Dosage: 25MG,
     Route: 048
  23. DECADRON [Concomitant]
     Dosage: 4 MG,
     Route: 048
     Dates: start: 20100712, end: 20100722
  24. PRILOSEC [Concomitant]
     Dosage: 20MG, BID
     Route: 048
  25. K-TAB [Concomitant]
     Dosage: 10 MEQ, BID
     Route: 048
  26. LIORESAL [Concomitant]
  27. ZESTRIL [Concomitant]
     Dosage: 10 MG
     Route: 048
  28. PRINIVIL [Concomitant]
     Dosage: 10 MG,
     Route: 048
  29. TENORMIN [Concomitant]
  30. MYCOLOG-II [Concomitant]
  31. LACTULOSE [Concomitant]
     Dosage: 10G/15ML
  32. COMPAZINE [Concomitant]
  33. MS CONTIN [Concomitant]

REACTIONS (41)
  - ABSCESS MANAGEMENT [None]
  - ANAEMIA [None]
  - ANHEDONIA [None]
  - ANXIETY [None]
  - ARTHRALGIA [None]
  - BACK PAIN [None]
  - BONE DISORDER [None]
  - BONE EROSION [None]
  - BONE OPERATION [None]
  - CONFUSIONAL STATE [None]
  - DEAFNESS [None]
  - DEBRIDEMENT [None]
  - DENTAL CARIES [None]
  - DENTAL FLUORIDE THERAPY [None]
  - DENTAL PLAQUE [None]
  - DIVERTICULUM [None]
  - DRY MOUTH [None]
  - DYSGEUSIA [None]
  - DYSPHAGIA [None]
  - GASTROSTOMY TUBE INSERTION [None]
  - HAEMATOCRIT ABNORMAL [None]
  - INJURY [None]
  - LOOSE TOOTH [None]
  - LUMBAR SPINAL STENOSIS [None]
  - LYMPHADENOPATHY [None]
  - MOUTH ULCERATION [None]
  - ORAL CANDIDIASIS [None]
  - OSTEONECROSIS OF JAW [None]
  - OSTEOPENIA [None]
  - OSTEORADIONECROSIS [None]
  - PAIN [None]
  - POLYP [None]
  - POOR PERSONAL HYGIENE [None]
  - RENAL FAILURE [None]
  - SKIN GRAFT [None]
  - SWELLING [None]
  - TONSIL CANCER [None]
  - TONSILLECTOMY [None]
  - TOOTH EXTRACTION [None]
  - VERTEBROPLASTY [None]
  - WEIGHT DECREASED [None]
